FAERS Safety Report 6397250-4 (Version None)
Quarter: 2009Q4

REPORT INFORMATION
  Report Type: 
  Country: None (occurrence: None)
  Receive Date: 20091012
  Receipt Date: 20090929
  Transmission Date: 20100525
  Serious: Yes (Other)
  Sender: FDA-Public Use
  Company Number: CA-MERCK-0910USA00971

PATIENT
  Age: 45 Year
  Sex: Female

DRUGS (5)
  1. DECADRON [Suspect]
     Indication: MENTAL DISORDER
     Route: 048
  2. DECADRON [Suspect]
     Indication: CENTRAL NERVOUS SYSTEM LESION
     Route: 048
  3. AMPHOTERICIN B [Concomitant]
     Indication: ANTIFUNGAL TREATMENT
     Route: 065
  4. FLUCYTOSINE [Concomitant]
     Indication: ANTIFUNGAL TREATMENT
     Route: 065
  5. FLUCONAZOLE [Concomitant]
     Indication: ANTIFUNGAL TREATMENT
     Route: 065

REACTIONS (2)
  - FALL [None]
  - HIP FRACTURE [None]
